FAERS Safety Report 25648432 (Version 1)
Quarter: 2025Q3

REPORT INFORMATION
  Report Type: Spontaneous
  Country: CN (occurrence: CN)
  Receive Date: 20250806
  Receipt Date: 20250806
  Transmission Date: 20251021
  Serious: Yes (Other)
  Sender: MERCK SHARP & DOHME LLC
  Company Number: CN-009507513-2315205

PATIENT
  Age: 41 Year
  Sex: Female
  Weight: 70 kg

DRUGS (4)
  1. CILASTATIN SODIUM\IMIPENEM [Suspect]
     Active Substance: CILASTATIN SODIUM\IMIPENEM
     Indication: Abdominal infection
     Dosage: 1G Q8H
     Route: 041
     Dates: start: 20250712, end: 20250718
  2. CILASTATIN SODIUM\IMIPENEM [Suspect]
     Active Substance: CILASTATIN SODIUM\IMIPENEM
     Indication: Abdominal infection
     Dosage: 0.5G QD
     Route: 033
     Dates: start: 20250712, end: 20250718
  3. CILASTATIN SODIUM\IMIPENEM [Suspect]
     Active Substance: CILASTATIN SODIUM\IMIPENEM
     Indication: Abdominal infection
     Dosage: 0.5G Q12H
     Route: 041
     Dates: start: 20250718, end: 20250720
  4. CILASTATIN SODIUM\IMIPENEM [Suspect]
     Active Substance: CILASTATIN SODIUM\IMIPENEM
     Indication: Abdominal infection
     Dosage: 0.1G QID
     Route: 033
     Dates: start: 20250718, end: 20250720

REACTIONS (6)
  - Mental disorder [Recovering/Resolving]
  - Persecutory delusion [Recovering/Resolving]
  - Disorganised speech [Recovering/Resolving]
  - Delirium [Recovering/Resolving]
  - Product use issue [Unknown]
  - Product use issue [Unknown]

NARRATIVE: CASE EVENT DATE: 20250712
